FAERS Safety Report 5283440-0 (Version None)
Quarter: 2007Q1

REPORT INFORMATION
  Report Type: 
  Country: None (occurrence: None)
  Receive Date: 20061226
  Receipt Date: 20061121
  Transmission Date: 20070707
  Serious: No
  Sender: FDA-Public Use
  Company Number: 2006PV025681

PATIENT
  Age: 50 Year
  Sex: Male
  Weight: 131.5431 kg

DRUGS (13)
  1. SYMLIN [Suspect]
     Indication: DIABETES MELLITUS
     Dosage: 60 MCG;TID;SC
     Route: 058
     Dates: start: 20061107
  2. NOVOLOG [Concomitant]
  3. HUMALOG [Concomitant]
  4. LANTUS [Concomitant]
  5. HUMULIN N [Concomitant]
  6. PROGRAF [Concomitant]
  7. CELLCEPT [Concomitant]
  8. PREDNISONE TAB [Concomitant]
  9. NORVASC [Concomitant]
  10. CLONIDINE [Concomitant]
  11. NEXIUM [Concomitant]
  12. ASPIRIN [Concomitant]
  13. PERCOCET [Concomitant]

REACTIONS (4)
  - ALOPECIA [None]
  - CONSTIPATION [None]
  - DECREASED APPETITE [None]
  - NAUSEA [None]
